FAERS Safety Report 4933441-4 (Version None)
Quarter: 2006Q1

REPORT INFORMATION
  Report Type: 
  Country: None (occurrence: None)
  Receive Date: 20060306
  Receipt Date: 20060223
  Transmission Date: 20060701
  Serious: Yes (Hospitalization)
  Sender: FDA-Public Use
  Company Number: FR-GLAXOSMITHKLINE-B0414097A

PATIENT
  Age: 54 Year
  Sex: Male
  Weight: 84 kg

DRUGS (4)
  1. ZOPHREN [Suspect]
     Indication: PROPHYLAXIS OF NAUSEA AND VOMITING
     Route: 042
     Dates: start: 20051001
  2. ELOXATIN [Suspect]
     Indication: COLON NEOPLASM
     Route: 042
     Dates: start: 20051001
  3. FLUOROURACIL [Concomitant]
     Indication: COLON NEOPLASM
     Route: 065
     Dates: start: 20051001
  4. FOLINATE DE CALCIUM [Concomitant]
     Indication: COLON NEOPLASM
     Route: 065
     Dates: start: 20051001

REACTIONS (3)
  - ERYTHEMA [None]
  - HYPOTENSION [None]
  - MALAISE [None]
